FAERS Safety Report 7581441-0 (Version None)
Quarter: 2011Q2

REPORT INFORMATION
  Report Type: 
  Country: None (occurrence: None)
  Receive Date: 20110629
  Receipt Date: 20110616
  Transmission Date: 20111010
  Serious: Yes (Other)
  Sender: FDA-Public Use
  Company Number: PHHY2011BR53507

PATIENT
  Sex: Female

DRUGS (3)
  1. CLONAZEPAM [Concomitant]
     Dosage: UNK UKN, UNK
  2. EXFORGE [Suspect]
     Dosage: 1 DF, UNK
  3. DIPLOC [Concomitant]
     Dosage: UNK UKN, UNK

REACTIONS (2)
  - INFARCTION [None]
  - HYPERTENSION [None]
